FAERS Safety Report 24695952 (Version 1)
Quarter: 2024Q4

REPORT INFORMATION
  Report Type: Spontaneous
  Country: DE (occurrence: DE)
  Receive Date: 20241204
  Receipt Date: 20241204
  Transmission Date: 20250115
  Serious: Yes (Other)
  Sender: TEVA
  Company Number: DE-TEVA-VS-3270408

PATIENT
  Age: 36 Year
  Sex: Male

DRUGS (2)
  1. BUPRENORPHINE [Suspect]
     Active Substance: BUPRENORPHINE
     Indication: Drug abuse
     Route: 048
  2. QUETIAPINE [Suspect]
     Active Substance: QUETIAPINE
     Indication: Drug abuse
     Route: 048

REACTIONS (2)
  - Drug abuse [Unknown]
  - Aggression [Unknown]
